FAERS Safety Report 10192940 (Version 3)
Quarter: 2014Q2

REPORT INFORMATION
  Report Type: Report from Study
  Country: TW (occurrence: TW)
  Receive Date: 20140523
  Receipt Date: 20140617
  Transmission Date: 20141212
  Serious: Yes (Hospitalization)
  Sender: FDA-Public Use
  Company Number: TW-ONYX-2014-1023

PATIENT
  Age: 62 Year
  Sex: Male

DRUGS (23)
  1. CARFILZOMIB [Suspect]
     Indication: PLASMA CELL MYELOMA
     Route: 042
     Dates: start: 20130701, end: 20130702
  2. CARFILZOMIB [Suspect]
     Route: 042
     Dates: start: 20130708, end: 20130716
  3. CARFILZOMIB [Suspect]
     Route: 042
     Dates: start: 20130730, end: 20140507
  4. CARFILZOMIB [Suspect]
     Route: 042
     Dates: start: 20140520
  5. DEXAMETHASONE [Suspect]
     Indication: PLASMA CELL MYELOMA
     Route: 048
     Dates: start: 20130701, end: 20130910
  6. DEXAMETHASONE [Suspect]
     Route: 048
     Dates: start: 20130911, end: 20130911
  7. DEXAMETHASONE [Suspect]
     Route: 048
     Dates: start: 20130924
  8. CINCHOCAINE HYDROCHLORIDE + HYDROCORTISONE (PROCTOSEDYL OINT) [Concomitant]
     Indication: HAEMORRHOIDS
     Route: 050
     Dates: start: 20130606
  9. NEXIUM (ESO OMEPRAZOLE) [Concomitant]
     Indication: ADVERSE DRUG REACTION
     Route: 048
     Dates: start: 20130701
  10. NEXIUM (ESO OMEPRAZOLE) [Concomitant]
     Indication: PROPHYLAXIS
  11. VALTREX [Concomitant]
     Indication: ADVERSE DRUG REACTION
     Route: 048
     Dates: start: 20130701
  12. VALTREX [Concomitant]
     Indication: PROPHYLAXIS
  13. NINCORT [Concomitant]
     Indication: MUCOSAL INFLAMMATION
     Route: 048
     Dates: start: 20130801
  14. NINCORT [Concomitant]
     Indication: PROPHYLAXIS
  15. NORVASC [Concomitant]
     Indication: HYPERTENSION
     Route: 048
     Dates: start: 20130918, end: 20140522
  16. ALLERGRA [Concomitant]
     Indication: COUGH
     Route: 048
     Dates: start: 20140128
  17. BENZONATATE [Concomitant]
     Indication: COUGH
     Route: 048
     Dates: start: 20140205
  18. ELOMET [Concomitant]
     Indication: PRURITUS GENERALISED
     Route: 061
     Dates: start: 20140320
  19. CODEINE [Concomitant]
     Indication: COUGH
     Route: 048
     Dates: start: 20140403, end: 20140409
  20. CODEINE [Concomitant]
     Route: 048
     Dates: start: 20140417, end: 20140423
  21. NAPSON [Concomitant]
     Indication: MUSCULOSKELETAL CHEST PAIN
     Route: 048
     Dates: start: 20140403, end: 20140409
  22. NAPSON [Concomitant]
     Route: 048
     Dates: start: 20140417, end: 20140423
  23. NO DRUG NAME [Concomitant]

REACTIONS (2)
  - Pyrexia [Recovered/Resolved]
  - Influenza [Recovered/Resolved]
